FAERS Safety Report 4378602-0 (Version None)
Quarter: 2004Q2

REPORT INFORMATION
  Report Type: 
  Country: None (occurrence: None)
  Receive Date: 20040609
  Receipt Date: 20040521
  Transmission Date: 20050107
  Serious: Yes (Hospitalization)
  Sender: FDA-Public Use
  Company Number: US_0405103259

PATIENT
  Age: 69 Year
  Sex: Female

DRUGS (3)
  1. GEMZAR [Suspect]
     Indication: BREAST CANCER
     Dates: start: 20040101
  2. PROCHLORPERAZINE [Concomitant]
  3. OXYCONTIN [Concomitant]

REACTIONS (9)
  - ANAEMIA [None]
  - ANOREXIA [None]
  - ASTHENIA [None]
  - BLOOD PRESSURE ORTHOSTATIC ABNORMAL [None]
  - HEART RATE ABNORMAL [None]
  - LETHARGY [None]
  - MALAISE [None]
  - SOMNOLENCE [None]
  - TACHYCARDIA [None]
